FAERS Safety Report 10440741 (Version 1)
Quarter: 2014Q3

REPORT INFORMATION
  Report Type: Spontaneous
  Country: US (occurrence: None)
  Receive Date: 20140908
  Receipt Date: 20140908
  Transmission Date: 20150326
  Serious: Yes (Other)
  Sender: FDA-Public Use
  Company Number: None

PATIENT
  Age: 46 Year
  Sex: Male
  Weight: 86.18 kg

DRUGS (1)
  1. STRATTERA [Suspect]
     Active Substance: ATOMOXETINE HYDROCHLORIDE
     Indication: ATTENTION DEFICIT/HYPERACTIVITY DISORDER
     Dosage: 2 CAPSULES, ONCE DAILY, TAKEN BY MOUTH
     Route: 048
     Dates: start: 20140828, end: 20140905

REACTIONS (3)
  - Orgasm abnormal [None]
  - Dizziness [None]
  - Dysuria [None]

NARRATIVE: CASE EVENT DATE: 20140905
